FAERS Safety Report 8148803 (Version 3)
Quarter: 2014Q1

REPORT INFORMATION
  Report Type: Spontaneous
  Country: US (occurrence: US)
  Receive Date: 20110922
  Receipt Date: 20140106
  Transmission Date: 20141002
  Serious: No
  Sender: FDA-Public Use
  Company Number: US-ASTRAZENECA-2011SE34567

PATIENT
  Age: 16 Year
  Sex: Female
  Weight: 53.5 kg

DRUGS (6)
  1. SEROQUEL XR [Suspect]
     Indication: BIPOLAR DISORDER
     Route: 048
     Dates: end: 20131224
  2. LITHOBID [Concomitant]
  3. LAMICTAL [Concomitant]
  4. LEVOTHYROXINE [Concomitant]
     Indication: HYPOTHYROIDISM
  5. MELATONIN [Concomitant]
     Indication: INSOMNIA
  6. METFORMIN [Concomitant]
     Indication: DECREASED APPETITE

REACTIONS (7)
  - Insomnia [Unknown]
  - Nausea [Unknown]
  - Weight increased [Unknown]
  - Vomiting [Unknown]
  - Increased appetite [Unknown]
  - Drug dose omission [Unknown]
  - Off label use [Unknown]
